FAERS Safety Report 24154758 (Version 3)
Quarter: 2024Q3

REPORT INFORMATION
  Report Type: Report from Study
  Country: US (occurrence: US)
  Receive Date: 20240731
  Receipt Date: 20240927
  Transmission Date: 20241016
  Serious: No
  Sender: ACADIA PHARMACEUTICALS
  Company Number: US-ACADIA PHARMACEUTICALS INC.-ACA-2024-TRF-003343

PATIENT
  Sex: Female

DRUGS (2)
  1. DAYBUE [Suspect]
     Active Substance: TROFINETIDE
     Indication: Rett syndrome
     Dosage: 25 MILLILITER, BID
  2. FIBER THERAPY (CALCIUM POLYCARBOPHIL) [Suspect]
     Active Substance: CALCIUM POLYCARBOPHIL
     Indication: Diarrhoea
     Dosage: UNK
     Dates: end: 202408

REACTIONS (5)
  - COVID-19 [Recovering/Resolving]
  - Flatulence [Not Recovered/Not Resolved]
  - Ear infection [Not Recovered/Not Resolved]
  - Diarrhoea [Not Recovered/Not Resolved]
  - Diarrhoea [Recovered/Resolved]
